FAERS Safety Report 23524498 (Version 1)
Quarter: 2024Q1

REPORT INFORMATION
  Report Type: Spontaneous
  Country: US (occurrence: US)
  Receive Date: 20240214
  Receipt Date: 20240214
  Transmission Date: 20240409
  Serious: Yes (Hospitalization, Other)
  Sender: FDA-Public Use
  Company Number: US-JNJFOC-20240220113

PATIENT
  Sex: Female

DRUGS (1)
  1. XARELTO [Suspect]
     Active Substance: RIVAROXABAN
     Indication: Product used for unknown indication
     Dosage: ATLEAST 6-7 YEARS
     Route: 048

REACTIONS (6)
  - Thrombosis [Unknown]
  - Eye haemorrhage [Unknown]
  - Fracture [Unknown]
  - Fall [Unknown]
  - Neuralgia [Recovering/Resolving]
  - Contusion [Unknown]

NARRATIVE: CASE EVENT DATE: 20231201
